FAERS Safety Report 6611316-2 (Version None)
Quarter: 2010Q1

REPORT INFORMATION
  Report Type: 
  Country: None (occurrence: None)
  Receive Date: 20100301
  Receipt Date: 20100301
  Transmission Date: 20100710
  Serious: Yes (Other)
  Sender: FDA-Public Use
  Company Number: None

PATIENT
  Age: 58 Year
  Sex: Female
  Weight: 131.5431 kg

DRUGS (1)
  1. TRANSDERM SCOP [Suspect]
     Indication: VERTIGO
     Dosage: 1 PATCH 3 OVER 9 DAYS TRANSDERMAL
     Route: 062
     Dates: start: 20100217, end: 20100225

REACTIONS (9)
  - BALANCE DISORDER [None]
  - DISORIENTATION [None]
  - DIZZINESS [None]
  - DRY MOUTH [None]
  - DYSPNOEA [None]
  - MOTION SICKNESS [None]
  - NAUSEA [None]
  - OEDEMA [None]
  - WITHDRAWAL SYNDROME [None]
